FAERS Safety Report 8916703 (Version 1)
Quarter: 2012Q4

REPORT INFORMATION
  Report Type: Report from Study
  Country: CA (occurrence: CA)
  Receive Date: 20121120
  Receipt Date: 20121120
  Transmission Date: 20130627
  Serious: Yes (Other)
  Sender: FDA-Public Use
  Company Number: CA-US-EMD SERONO, INC.-7165495

PATIENT
  Age: 17 None
  Sex: Female

DRUGS (2)
  1. REBIF [Suspect]
     Indication: RELAPSING-REMITTING MULTIPLE SCLEROSIS
     Route: 058
     Dates: start: 20120925
  2. REBIF [Suspect]
     Route: 058

REACTIONS (7)
  - Vulvovaginal injury [Unknown]
  - Scratch [Unknown]
  - Skin fragility [Not Recovered/Not Resolved]
  - Headache [Recovered/Resolved]
  - Injection site erythema [Recovering/Resolving]
  - Injection site swelling [Recovering/Resolving]
  - Injection site bruising [Not Recovered/Not Resolved]
